FAERS Safety Report 20575259 (Version 2)
Quarter: 2023Q1

REPORT INFORMATION
  Report Type: Spontaneous
  Country: US (occurrence: US)
  Receive Date: 20220310
  Receipt Date: 20230118
  Transmission Date: 20230418
  Serious: Yes (Other)
  Sender: FDA-Public Use
  Company Number: US-GILEAD-2022-0572848

PATIENT
  Age: 55 Year
  Sex: Male
  Weight: 83.9 kg

DRUGS (32)
  1. ATRIPLA [Suspect]
     Active Substance: EFAVIRENZ\EMTRICITABINE\TENOFOVIR DISOPROXIL FUMARATE
     Indication: HIV infection
     Dosage: UNK
     Route: 048
     Dates: start: 2007
  2. ATRIPLA [Suspect]
     Active Substance: EFAVIRENZ\EMTRICITABINE\TENOFOVIR DISOPROXIL FUMARATE
     Dosage: UNK
     Route: 048
     Dates: start: 200908, end: 201907
  3. BIKTARVY [Concomitant]
     Active Substance: BICTEGRAVIR SODIUM\EMTRICITABINE\TENOFOVIR ALAFENAMIDE FUMARATE
  4. JULUCA [Concomitant]
     Active Substance: DOLUTEGRAVIR SODIUM\RILPIVIRINE HYDROCHLORIDE
  5. DIAZEPAM [Concomitant]
     Active Substance: DIAZEPAM
  6. GABAPENTIN [Concomitant]
     Active Substance: GABAPENTIN
  7. IBUPROFEN [Concomitant]
     Active Substance: IBUPROFEN
  8. LEVOTHYROXINE [Concomitant]
     Active Substance: LEVOTHYROXINE
  9. MELOXICAM [Concomitant]
     Active Substance: MELOXICAM
  10. NARCAN [Concomitant]
     Active Substance: NALOXONE HYDROCHLORIDE
  11. OMEPRAZOLE [Concomitant]
     Active Substance: OMEPRAZOLE
  12. OXYCODONE [Concomitant]
     Active Substance: OXYCODONE
  13. VITAMIN D2 [Concomitant]
     Active Substance: ERGOCALCIFEROL
  14. DOCUSATE [Concomitant]
     Active Substance: DOCUSATE
  15. CLINDAMYCIN [Concomitant]
     Active Substance: CLINDAMYCIN
  16. BACTRIM [Concomitant]
     Active Substance: SULFAMETHOXAZOLE\TRIMETHOPRIM
  17. CHANTIX [Concomitant]
     Active Substance: VARENICLINE TARTRATE
  18. CYCLOBENZAPRINE [Concomitant]
     Active Substance: CYCLOBENZAPRINE
  19. ATROPINE\DIPHENOXYLATE [Concomitant]
     Active Substance: ATROPINE\DIPHENOXYLATE
  20. DRONABINOL [Concomitant]
     Active Substance: DRONABINOL
  21. DULOXETINE [Concomitant]
     Active Substance: DULOXETINE
  22. ENDOCET [Concomitant]
     Active Substance: ACETAMINOPHEN\OXYCODONE HYDROCHLORIDE
  23. HYDROCODONE BITARTRATE AND ACETAMINOPHEN [Concomitant]
     Active Substance: ACETAMINOPHEN\HYDROCODONE BITARTRATE
  24. ALLOPURINOL [Concomitant]
     Active Substance: ALLOPURINOL
  25. HYDROXYZINE [Concomitant]
     Active Substance: HYDROXYZINE HYDROCHLORIDE
  26. LANSOPRAZOLE [Concomitant]
     Active Substance: LANSOPRAZOLE
  27. NABUMETONE [Concomitant]
     Active Substance: NABUMETONE
  28. POTASSIUM CHLORIDE [Concomitant]
     Active Substance: POTASSIUM CHLORIDE
  29. ACETAMINOPHEN\OXYCODONE HYDROCHLORIDE [Concomitant]
     Active Substance: ACETAMINOPHEN\OXYCODONE HYDROCHLORIDE
  30. RANITIDINE [Concomitant]
     Active Substance: RANITIDINE
  31. TIZANIDINE [Concomitant]
     Active Substance: TIZANIDINE
  32. WELLBUTRIN [Concomitant]
     Active Substance: BUPROPION HYDROCHLORIDE

REACTIONS (16)
  - Osteoporosis [Not Recovered/Not Resolved]
  - Osteoporosis [Unknown]
  - Multiple fractures [Unknown]
  - Sternal fracture [Unknown]
  - Rib fracture [Unknown]
  - Upper limb fracture [Unknown]
  - Rib fracture [Unknown]
  - Bone density decreased [Unknown]
  - Pain [Not Recovered/Not Resolved]
  - Emotional distress [Not Recovered/Not Resolved]
  - Anxiety [Not Recovered/Not Resolved]
  - Anhedonia [Not Recovered/Not Resolved]
  - Osteopenia [Not Recovered/Not Resolved]
  - Gait disturbance [Unknown]
  - Arthralgia [Unknown]
  - Arthralgia [Unknown]

NARRATIVE: CASE EVENT DATE: 20170701
